FAERS Safety Report 6752896-6 (Version None)
Quarter: 2010Q2

REPORT INFORMATION
  Report Type: 
  Country: None (occurrence: None)
  Receive Date: 20100602
  Receipt Date: 20100602
  Transmission Date: 20101027
  Serious: Yes (Hospitalization)
  Sender: FDA-Public Use
  Company Number: None

PATIENT
  Age: 40 Year
  Sex: Male
  Weight: 68.0396 kg

DRUGS (2)
  1. NUVIGIL [Suspect]
     Indication: FATIGUE
     Dosage: 150 MG ONCE DAILY PO
     Route: 048
     Dates: start: 20100525, end: 20100527
  2. NUVIGIL [Suspect]
     Indication: FIBROMYALGIA
     Dosage: 150 MG ONCE DAILY PO
     Route: 048
     Dates: start: 20100525, end: 20100527

REACTIONS (2)
  - OCULAR ICTERUS [None]
  - URTICARIA [None]
